FAERS Safety Report 5836990-X (Version None)
Quarter: 2008Q3

REPORT INFORMATION
  Report Type: 
  Country: None (occurrence: None)
  Receive Date: 20080807
  Receipt Date: 20080730
  Transmission Date: 20090109
  Serious: Yes (Hospitalization)
  Sender: FDA-Public Use
  Company Number: US-JNJFOC-20080707247

PATIENT
  Sex: Female
  Weight: 44.4 kg

DRUGS (3)
  1. REMICADE [Suspect]
     Indication: INFLAMMATORY BOWEL DISEASE
     Dosage: COMPLETED 3DOSES
     Route: 042
  2. AZATHIOPRINE [Concomitant]
  3. SULFASALAZINE [Concomitant]

REACTIONS (1)
  - INFLAMMATORY BOWEL DISEASE [None]
